FAERS Safety Report 6363094-2 (Version None)
Quarter: 2009Q3

REPORT INFORMATION
  Report Type: 
  Country: None (occurrence: None)
  Receive Date: 20090919
  Receipt Date: 20090618
  Transmission Date: 20100115
  Serious: No
  Sender: FDA-Public Use
  Company Number: US-ABBOTT-09P-163-0581056-00

PATIENT
  Sex: Female

DRUGS (2)
  1. HUMIRA [Suspect]
     Indication: CROHN'S DISEASE
     Route: 058
     Dates: start: 20090301, end: 20090601
  2. HUMIRA [Suspect]
     Indication: COLITIS ULCERATIVE

REACTIONS (3)
  - INJECTION SITE REACTION [None]
  - MYALGIA [None]
  - RASH [None]
